FAERS Safety Report 15799581 (Version 1)
Quarter: 2019Q1

REPORT INFORMATION
  Report Type: Spontaneous
  Country: CO (occurrence: CO)
  Receive Date: 20190108
  Receipt Date: 20190108
  Transmission Date: 20190417
  Serious: Yes (Other)
  Sender: FDA-Public Use
  Company Number: CO-BAYER-2019-001056

PATIENT
  Age: 46 Year
  Sex: Male

DRUGS (1)
  1. ASPIRIN. [Suspect]
     Active Substance: ASPIRIN
     Dosage: 3 DF, QD

REACTIONS (3)
  - Dyspnoea [Unknown]
  - Hypoaesthesia [Unknown]
  - Chest pain [Unknown]
